FAERS Safety Report 13415500 (Version 2)
Quarter: 2017Q2

REPORT INFORMATION
  Report Type: Spontaneous
  Country: SE (occurrence: SE)
  Receive Date: 20170406
  Receipt Date: 20170615
  Transmission Date: 20170830
  Serious: Yes (Hospitalization, Other)
  Sender: FDA-Public Use
  Company Number: SE-NOVOPROD-538560

PATIENT
  Age: 74 Year
  Sex: Female

DRUGS (2)
  1. VAGIFEM [Suspect]
     Active Substance: ESTRADIOL
     Indication: URINARY TRACT DISORDER
     Dosage: UNK (2-3 TIMES A WEEK )
     Route: 067
     Dates: start: 20140918, end: 201610
  2. VAGIFEM [Suspect]
     Active Substance: ESTRADIOL
     Indication: ATROPHIC VULVOVAGINITIS
     Dosage: 10 ?G, BIW
     Route: 067
     Dates: start: 20121204

REACTIONS (1)
  - Vaginal polyp [Recovered/Resolved]

NARRATIVE: CASE EVENT DATE: 20160301
